FAERS Safety Report 4349607-0 (Version None)
Quarter: 2004Q2

REPORT INFORMATION
  Report Type: 
  Country: None (occurrence: None)
  Receive Date: 20040427
  Receipt Date: 20040116
  Transmission Date: 20050107
  Serious: No
  Sender: FDA-Public Use
  Company Number: 000754

PATIENT
  Age: 76 Year
  Sex: Male

DRUGS (4)
  1. ZEVALIN [Suspect]
     Dosage: UNK, SINGLE, RITUXAN DOSE 1, INTRAVENOUS SEE IMAGE
     Route: 042
     Dates: start: 20031101, end: 20031101
  2. ZEVALIN [Suspect]
     Dosage: UNK, SINGLE, RITUXAN DOSE 1, INTRAVENOUS SEE IMAGE
     Route: 042
     Dates: start: 20031101, end: 20031101
  3. ZEVALIN [Suspect]
     Dosage: UNK, SINGLE, RITUXAN DOSE 1, INTRAVENOUS SEE IMAGE
     Route: 042
     Dates: start: 20031101, end: 20031101
  4. ZEVALIN [Suspect]
     Dosage: UNK, SINGLE, RITUXAN DOSE 1, INTRAVENOUS SEE IMAGE
     Route: 042
     Dates: start: 20031101, end: 20031101

REACTIONS (1)
  - GOUT [None]
